FAERS Safety Report 8481650-2 (Version None)
Quarter: 2012Q3

REPORT INFORMATION
  Report Type: 
  Country: None (occurrence: None)
  Receive Date: 20120702
  Receipt Date: 20120620
  Transmission Date: 20120928
  Serious: Yes (Other)
  Sender: FDA-Public Use
  Company Number: US-BAYER-2012-061730

PATIENT
  Age: 80 Year
  Sex: Female
  Weight: 122.45 kg

DRUGS (6)
  1. METFORMIN HCL [Concomitant]
  2. ASPIRIN [Suspect]
     Indication: ARTHRITIS
     Dosage: 1 U, PRN
     Route: 048
     Dates: start: 20120617, end: 20120618
  3. ALEVE (CAPLET) [Suspect]
     Indication: ARTHRITIS
     Dosage: 1 U, PRN
     Route: 048
     Dates: start: 20120619
  4. SIMVASTATIN [Concomitant]
  5. LISINOPRIL [Concomitant]
  6. OCUVITE [ASCORBIC ACID,RETINOL,TOCOPHEROL] [Concomitant]

REACTIONS (2)
  - PAIN [None]
  - DEAFNESS [None]
